FAERS Safety Report 5228410-3 (Version None)
Quarter: 2007Q1

REPORT INFORMATION
  Report Type: 
  Country: None (occurrence: None)
  Receive Date: 20070131
  Receipt Date: 20070116
  Transmission Date: 20070707
  Serious: Yes (Hospitalization)
  Sender: FDA-Public Use
  Company Number: E3810-00532-SPO-FR

PATIENT
  Age: 57 Year
  Sex: Female
  Weight: 57 kg

DRUGS (6)
  1. RABEPRAZOLE SODIUM [Suspect]
     Dosage: ORAL
     Route: 048
     Dates: start: 20030101
  2. MOTILIUM [Suspect]
     Dosage: 30 MG, ORAL
     Route: 048
     Dates: start: 20030101
  3. PIASCLEDINE (PIASCLEDINE) [Suspect]
     Dosage: ORAL
     Route: 048
     Dates: start: 20040101
  4. ZOCOR [Suspect]
     Indication: DYSLIPIDAEMIA
     Dates: start: 19950101
  5. ADEPAL (EUGYNON) [Suspect]
     Dosage: ORAL
     Route: 048
     Dates: start: 19750101
  6. INDAPAMIDE [Suspect]
     Indication: HYPERTENSION
     Dosage: ORAL
     Route: 048
     Dates: start: 19950101

REACTIONS (1)
  - CEREBROVASCULAR ACCIDENT [None]
